FAERS Safety Report 8410316-X (Version None)
Quarter: 2012Q2

REPORT INFORMATION
  Report Type: 
  Country: None (occurrence: None)
  Receive Date: 20120605
  Receipt Date: 20120531
  Transmission Date: 20120825
  Serious: Yes (Other)
  Sender: FDA-Public Use
  Company Number: AT-PFIZER INC-2012132059

PATIENT
  Age: 54 Year
  Sex: Female

DRUGS (2)
  1. XALATAN [Suspect]
  2. BIMATOPROST AND TIMOLOL MALEATE [Concomitant]

REACTIONS (1)
  - VITREOUS LOSS [None]
